FAERS Safety Report 5167312-8 (Version None)
Quarter: 2006Q4

REPORT INFORMATION
  Report Type: 
  Country: None (occurrence: None)
  Receive Date: 20061129
  Receipt Date: 20061120
  Transmission Date: 20070319
  Serious: Yes (Death, Hospitalization)
  Sender: FDA-Public Use
  Company Number: TAP2006Q01850

PATIENT
  Age: 89 Year
  Sex: Male

DRUGS (4)
  1. LUPRON DEPOT-4 [Suspect]
     Indication: PROSTATE CANCER
     Dosage: 30 MG, 1 IN 4 M, INTRAMUSCULAR
     Route: 030
     Dates: start: 20050221, end: 20060726
  2. DIAMACRON (GLICLAZIDE) [Concomitant]
  3. METFORMIN HCL [Concomitant]
  4. ATACAND [Concomitant]

REACTIONS (6)
  - ABDOMINAL PAIN LOWER [None]
  - ANOREXIA [None]
  - BLADDER OBSTRUCTION [None]
  - EMPHYSEMA [None]
  - ORAL INTAKE REDUCED [None]
  - VOMITING [None]
